FAERS Safety Report 8494060-9 (Version None)
Quarter: 2012Q3

REPORT INFORMATION
  Report Type: 
  Country: None (occurrence: None)
  Receive Date: 20120709
  Receipt Date: 20120702
  Transmission Date: 20120928
  Serious: Yes (Other)
  Sender: FDA-Public Use
  Company Number: US-AMGEN-USASP2012040892

PATIENT
  Age: 50 Year
  Sex: Female

DRUGS (1)
  1. ENBREL [Suspect]
     Indication: RHEUMATOID ARTHRITIS
     Dosage: 50 MG, QWK
     Dates: start: 20100101

REACTIONS (7)
  - UNRESPONSIVE TO STIMULI [None]
  - SYNCOPE [None]
  - MUSCLE TIGHTNESS [None]
  - INJECTION SITE HAEMORRHAGE [None]
  - LOSS OF CONSCIOUSNESS [None]
  - FATIGUE [None]
  - MOANING [None]
